FAERS Safety Report 13675523 (Version 1)
Quarter: 2017Q2

REPORT INFORMATION
  Report Type: Spontaneous
  Country: US (occurrence: US)
  Receive Date: 20170621
  Receipt Date: 20170621
  Transmission Date: 20170830
  Serious: Yes (Other)
  Sender: FDA-Public Use
  Company Number: US-PFIZER INC-2017262922

PATIENT
  Sex: Female

DRUGS (1)
  1. XELJANZ XR [Suspect]
     Active Substance: TOFACITINIB CITRATE
     Dosage: 11 MG, DAILY

REACTIONS (15)
  - Joint swelling [Unknown]
  - Foreign body [Unknown]
  - Joint warmth [Unknown]
  - Fatigue [Unknown]
  - Joint stiffness [Unknown]
  - Arthralgia [Unknown]
  - Joint effusion [Unknown]
  - Foot deformity [Unknown]
  - Musculoskeletal pain [Unknown]
  - Joint range of motion decreased [Unknown]
  - Finger deformity [Unknown]
  - Arthrodesis [Unknown]
  - Musculoskeletal stiffness [Unknown]
  - Pain in extremity [Unknown]
  - Synovitis [Unknown]
